FAERS Safety Report 7455178-2 (Version None)
Quarter: 2011Q2

REPORT INFORMATION
  Report Type: 
  Country: None (occurrence: None)
  Receive Date: 20110503
  Receipt Date: 20110421
  Transmission Date: 20111010
  Serious: Yes (Other)
  Sender: FDA-Public Use
  Company Number: PHHY2011AT36364

PATIENT
  Sex: Female
  Weight: 58 kg

DRUGS (1)
  1. STALEVO 100 [Suspect]
     Indication: PARKINSON'S DISEASE
     Dates: start: 20110304, end: 20110314

REACTIONS (1)
  - DIARRHOEA [None]
